FAERS Safety Report 5219624-7 (Version None)
Quarter: 2007Q1

REPORT INFORMATION
  Report Type: 
  Country: None (occurrence: None)
  Receive Date: 20070125
  Receipt Date: 20070122
  Transmission Date: 20070707
  Serious: Yes (Other)
  Sender: FDA-Public Use
  Company Number: GR-SHR-GR-2007-002380

PATIENT
  Age: 36 Year
  Sex: Female
  Weight: 75 kg

DRUGS (1)
  1. MAGNEVIST [Suspect]
     Indication: DIAGNOSTIC PROCEDURE
     Dosage: 20 ML, 1 DOSE
     Route: 042
     Dates: start: 20070102, end: 20070102

REACTIONS (3)
  - COUGH [None]
  - NASAL CONGESTION [None]
  - SALIVARY HYPERSECRETION [None]
